FAERS Safety Report 10014614 (Version 2)
Quarter: 2019Q2

REPORT INFORMATION
  Report Type: Report from Study
  Country: AU (occurrence: AU)
  Receive Date: 20140317
  Receipt Date: 20190610
  Transmission Date: 20190711
  Serious: Yes (Congenital Anomaly)
  Sender: FDA-Public Use
  Company Number: AU-UCBSA-114555

PATIENT
  Age: 0 Year
  Sex: Male
  Weight: 3 kg

DRUGS (4)
  1. TOPIRAMATE. [Suspect]
     Active Substance: TOPIRAMATE
     Indication: EPILEPSY
     Dosage: 150 MG
     Route: 064
     Dates: start: 20040103
  2. TOPIRAMATE. [Suspect]
     Active Substance: TOPIRAMATE
     Dosage: 600 MG, UNK
     Route: 064
  3. FOLIC ACID. [Concomitant]
     Active Substance: FOLIC ACID
     Indication: SUPPLEMENTATION THERAPY
     Dosage: 5 MG
     Route: 064
     Dates: start: 20040103
  4. KEPPRA [Suspect]
     Active Substance: LEVETIRACETAM
     Indication: EPILEPSY
     Dosage: 3000 MG
     Route: 064
     Dates: start: 20040103

REACTIONS (4)
  - Congenital ureteric anomaly [Not Recovered/Not Resolved]
  - Maternal exposure during pregnancy [Recovered/Resolved]
  - Congenital hydronephrosis [Not Recovered/Not Resolved]
  - Atrial septal defect [Not Recovered/Not Resolved]

NARRATIVE: CASE EVENT DATE: 20040103
